FAERS Safety Report 7946341-2 (Version None)
Quarter: 2011Q4

REPORT INFORMATION
  Report Type: 
  Country: None (occurrence: None)
  Receive Date: 20111129
  Receipt Date: 20111119
  Transmission Date: 20120403
  Serious: Yes (Death, Life-Threatening, Hospitalization)
  Sender: FDA-Public Use
  Company Number: US-ACTELION-A-NJ2011-55529

PATIENT

DRUGS (8)
  1. METOPROLOL TARTRATE [Concomitant]
  2. VENTAVIS [Suspect]
     Indication: PULMONARY ARTERIAL HYPERTENSION
     Dosage: UNK
     Route: 055
     Dates: start: 20110929, end: 20111101
  3. OXYGEN [Concomitant]
  4. LASIX [Concomitant]
  5. ASPIRIN [Concomitant]
  6. CALCIUM CHANNEL BLOCKERS [Concomitant]
  7. LOSARTAN/HYDROCHLOORTHIAZIDE [Concomitant]
  8. CLONIDINE [Concomitant]

REACTIONS (11)
  - HYPOTENSION [None]
  - TREMOR [None]
  - CONDITION AGGRAVATED [None]
  - DYSPNOEA [None]
  - ABDOMINAL DISTENSION [None]
  - ASTHENIA [None]
  - DEATH [None]
  - UNRESPONSIVE TO STIMULI [None]
  - FATIGUE [None]
  - HEART RATE INCREASED [None]
  - OXYGEN SATURATION DECREASED [None]
